FAERS Safety Report 5794762-9 (Version None)
Quarter: 2008Q2

REPORT INFORMATION
  Report Type: 
  Country: None (occurrence: None)
  Receive Date: 20080630
  Receipt Date: 20080619
  Transmission Date: 20081010
  Serious: Yes (Other)
  Sender: FDA-Public Use
  Company Number: US-WYE-H04619508

PATIENT
  Age: 45 Year
  Sex: Male

DRUGS (2)
  1. PRIMATENE MIST [Suspect]
     Dosage: 24 TABLETS X 1
     Route: 048
     Dates: start: 20080618, end: 20080618
  2. ETHANOL [Suspect]
     Dosage: ^A FIFTH OF ALCOHOL^ X 1
     Route: 048
     Dates: start: 20080618, end: 20080618

REACTIONS (3)
  - HALLUCINATION [None]
  - INCOHERENT [None]
  - OVERDOSE [None]
